FAERS Safety Report 16222396 (Version 1)
Quarter: 2019Q2

REPORT INFORMATION
  Report Type: Spontaneous
  Country: US (occurrence: US)
  Receive Date: 20190419
  Receipt Date: 20190419
  Transmission Date: 20190711
  Serious: Yes (Hospitalization)
  Sender: FDA-Public Use
  Company Number: None

PATIENT

DRUGS (2)
  1. TALTZ [Concomitant]
     Active Substance: IXEKIZUMAB
  2. TALTZ [Suspect]
     Active Substance: IXEKIZUMAB

REACTIONS (8)
  - Gait disturbance [None]
  - Swelling face [None]
  - Urticaria [None]
  - Fall [None]
  - Vomiting [None]
  - Dysphagia [None]
  - Chest pain [None]
  - Dizziness [None]

NARRATIVE: CASE EVENT DATE: 20190415
